FAERS Safety Report 13975700 (Version 2)
Quarter: 2017Q4

REPORT INFORMATION
  Report Type: Report from Study
  Country: LB (occurrence: LB)
  Receive Date: 20170915
  Receipt Date: 20171003
  Transmission Date: 20180321
  Serious: Yes (Death, Other)
  Sender: FDA-Public Use
  Company Number: LB-INCYTE CORPORATION-2017IN007561

PATIENT

DRUGS (1)
  1. JAKAVI [Suspect]
     Active Substance: RUXOLITINIB
     Indication: MYELOFIBROSIS
     Dosage: 10 MG, QD
     Route: 048
     Dates: end: 201709

REACTIONS (6)
  - Hypokalaemia [Fatal]
  - Diarrhoea [Fatal]
  - Hypocalcaemia [Fatal]
  - Infection [Fatal]
  - Immune system disorder [Fatal]
  - Acute myeloid leukaemia [Unknown]
